FAERS Safety Report 5843174-8 (Version None)
Quarter: 2008Q3

REPORT INFORMATION
  Report Type: 
  Country: None (occurrence: None)
  Receive Date: 20080813
  Receipt Date: 20080731
  Transmission Date: 20090109
  Serious: Yes (Hospitalization)
  Sender: FDA-Public Use
  Company Number: PHHO2008FR09469

PATIENT
  Sex: Female

DRUGS (3)
  1. ERL 080A ERL+TAB [Suspect]
     Indication: RENAL TRANSPLANT
     Dosage: 720 MG, BID
     Route: 048
     Dates: start: 20071230, end: 20080701
  2. CORTICOSTEROIDS [Concomitant]
     Indication: RENAL TRANSPLANT
     Dosage: 7.5 MG, DAILY
     Route: 048
  3. ANTIBIOTICS [Concomitant]

REACTIONS (2)
  - ANGINA PECTORIS [None]
  - HYPERTHERMIA [None]
